FAERS Safety Report 9930772 (Version 2)
Quarter: 2014Q1

REPORT INFORMATION
  Report Type: Spontaneous
  Country: US (occurrence: US)
  Receive Date: 20140227
  Receipt Date: 20140227
  Transmission Date: 20141002
  Serious: No
  Sender: FDA-Public Use
  Company Number: US-AMGEN-USASP2014000124

PATIENT
  Age: 66 Year
  Sex: Female
  Weight: 112.2 kg

DRUGS (19)
  1. ENBREL [Suspect]
     Indication: RHEUMATOID ARTHRITIS
     Dosage: 50 MG, QWK
     Route: 058
     Dates: start: 20130912
  2. CENTRUM SILVER ADULTS 50+ [Concomitant]
     Dosage: UNK
  3. PREMARIN [Concomitant]
     Dosage: 0.3 MG, UNK
  4. METHOTREXATE [Concomitant]
     Dosage: 2.5 MG, UNK
  5. TRAMADOL HCL [Concomitant]
     Dosage: 50 MG, UNK
  6. GABAPENTIN [Concomitant]
     Dosage: 100 MG, UNK
  7. LISINOPRIL [Concomitant]
     Dosage: 10 MG, UNK
  8. CARVEDILOL [Concomitant]
     Dosage: 12.5 MG, UNK
  9. ECOTRIN [Concomitant]
     Dosage: 325 MG, UNK
  10. VITAMIN E                          /00110501/ [Concomitant]
     Dosage: 1000 IU, UNK
  11. NEXIUM                             /01479302/ [Concomitant]
     Dosage: 20 MG, UNK
  12. CLONIDINE [Concomitant]
     Dosage: 0.1 MG, UNK
  13. MECLIZINE                          /00072801/ [Concomitant]
     Dosage: 25 MG, UNK
  14. PLAVIX [Concomitant]
     Dosage: 75 MG, UNK
  15. LEXAPRO [Concomitant]
     Dosage: 10 MG, UNK
  16. B COMPLEX                          /00212701/ [Concomitant]
     Dosage: UNK
  17. VITAMIN D                          /00107901/ [Concomitant]
     Dosage: 1000 IU, UNK
  18. OSTEO BI-FLEX                      /01431201/ [Concomitant]
     Dosage: 250-200, UNK
  19. FOLIC ACID [Concomitant]
     Dosage: UNK

REACTIONS (3)
  - Headache [Recovered/Resolved]
  - Pain [Recovered/Resolved]
  - Gastroenteritis [Recovered/Resolved]
